FAERS Safety Report 12717892 (Version 5)
Quarter: 2017Q3

REPORT INFORMATION
  Report Type: Report from Study
  Country: JP (occurrence: JP)
  Receive Date: 20160906
  Receipt Date: 20170811
  Transmission Date: 20171127
  Serious: Yes (Life-Threatening, Hospitalization, Other)
  Sender: FDA-Public Use
  Company Number: JP-BRISTOL-MYERS SQUIBB COMPANY-BMS-2016-038907

PATIENT
  Age: 59 Year
  Sex: Male

DRUGS (3)
  1. IPILIMUMAB [Suspect]
     Active Substance: IPILIMUMAB
     Indication: MALIGNANT MELANOMA
     Dosage: 3 MG/KG, Q3WK
     Route: 065
     Dates: start: 20160317, end: 20160317
  2. IPILIMUMAB [Suspect]
     Active Substance: IPILIMUMAB
     Indication: PRODUCT USED FOR UNKNOWN INDICATION
     Dosage: 3 MG/KG, Q3WK
     Route: 065
     Dates: start: 20160428
  3. IPILIMUMAB [Suspect]
     Active Substance: IPILIMUMAB
     Indication: PRODUCT USED FOR UNKNOWN INDICATION
     Dosage: 3 MG/KG, Q3WK
     Route: 065
     Dates: start: 20160408

REACTIONS (3)
  - Malignant neoplasm progression [Unknown]
  - Meningitis aseptic [Recovered/Resolved]
  - Urinary retention [Recovering/Resolving]

NARRATIVE: CASE EVENT DATE: 20160507
